FAERS Safety Report 4471967-0 (Version None)
Quarter: 2004Q4

REPORT INFORMATION
  Report Type: 
  Country: None (occurrence: None)
  Receive Date: 20041007
  Receipt Date: 20040922
  Transmission Date: 20050328
  Serious: Yes (Death, Other)
  Sender: FDA-Public Use
  Company Number: 2004234776JP

PATIENT
  Age: 41 Year
  Sex: Female

DRUGS (11)
  1. ETOPOSIDE [Suspect]
     Indication: PERIPHERAL T-CELL LYMPHOMA UNSPECIFIED
     Dosage: CUMULATIVE DOSE: 4500 MG
  2. ADRIAMYCIN PFS [Suspect]
     Indication: PERIPHERAL T-CELL LYMPHOMA UNSPECIFIED
     Dosage: CUMULATIVE DOSE: 400 MG
  3. CYCLOPHOSPHAMIDE [Suspect]
     Indication: PERIPHERAL T-CELL LYMPHOMA UNSPECIFIED
     Dosage: 5500 MG
  4. CISPLATIN [Concomitant]
  5. VINCRISTINE [Concomitant]
  6. BLEOMYCIN [Concomitant]
  7. PREDNISOLONE [Concomitant]
  8. MITOXANTRONE [Concomitant]
  9. VINDESINE (VINDESINE) [Concomitant]
  10. CARBOPLATIN [Concomitant]
  11. CYTARABINE [Concomitant]

REACTIONS (11)
  - ACUTE MYELOID LEUKAEMIA [None]
  - ANAEMIA [None]
  - BONE MARROW DEPRESSION [None]
  - CEREBELLAR TUMOUR [None]
  - CEREBRAL HAEMORRHAGE [None]
  - CHROMOSOME ANALYSIS ABNORMAL [None]
  - HAEMORRHAGIC DISORDER [None]
  - HEADACHE [None]
  - MYELODYSPLASTIC SYNDROME [None]
  - T-CELL LYMPHOMA [None]
  - THROMBOCYTOPENIA [None]
